FAERS Safety Report 8905688 (Version 3)
Quarter: 2013Q1

REPORT INFORMATION
  Report Type: Spontaneous
  Country: AU (occurrence: AU)
  Receive Date: 20121109
  Receipt Date: 20130206
  Transmission Date: 20140127
  Serious: Yes (Life-Threatening, Hospitalization, Other)
  Sender: FDA-Public Use
  Company Number: AU-ARROW-2012-18699

PATIENT
  Age: 14 Year
  Sex: Female

DRUGS (6)
  1. FLUOXETINE HYDROCHLORIDE (UNKNOWN) [Suspect]
     Indication: DEPRESSION
     Dosage: 40MG/DAY
     Route: 065
     Dates: start: 20120706
  2. FLUOXETINE HYDROCHLORIDE (UNKNOWN) [Suspect]
     Dosage: 30MG/DAY
     Route: 065
     Dates: start: 20120629, end: 20120705
  3. FLUOXETINE HYDROCHLORIDE (UNKNOWN) [Suspect]
     Dosage: 20MG/DAY
     Route: 065
     Dates: start: 20120607, end: 20120628
  4. FLUOXETINE HYDROCHLORIDE (UNKNOWN) [Suspect]
     Dosage: 10MG/DAY
     Dates: start: 20120601, end: 20120606
  5. PARACETAMOL (UNKNOWN) [Suspect]
     Indication: PRODUCT USED FOR UNKNOWN INDICATION
     Dosage: UNK
     Route: 065
  6. ZYPREXA [Concomitant]
     Indication: PRODUCT USED FOR UNKNOWN INDICATION
     Dosage: 5 MG DAILY
     Route: 048
     Dates: start: 20120209

REACTIONS (4)
  - Suicidal behaviour [Recovered/Resolved]
  - Suicide attempt [Recovered/Resolved]
  - Suicidal ideation [Recovered/Resolved]
  - Intentional overdose [Recovered/Resolved]
